FAERS Safety Report 6919589-3 (Version None)
Quarter: 2010Q3

REPORT INFORMATION
  Report Type: 
  Country: None (occurrence: None)
  Receive Date: 20100811
  Receipt Date: 20100809
  Transmission Date: 20110219
  Serious: Yes (Other)
  Sender: FDA-Public Use
  Company Number: NL-MERCK-1001NLD00004

PATIENT
  Age: 55 Year
  Sex: Male

DRUGS (1)
  1. MAXALT [Suspect]
     Indication: MIGRAINE
     Route: 048
     Dates: start: 20090101, end: 20090620

REACTIONS (3)
  - DEAFNESS [None]
  - TINNITUS [None]
  - VASCULAR OCCLUSION [None]
